FAERS Safety Report 7463096-9 (Version None)
Quarter: 2011Q2

REPORT INFORMATION
  Report Type: 
  Country: None (occurrence: None)
  Receive Date: 20110506
  Receipt Date: 20110426
  Transmission Date: 20111010
  Serious: Yes (Other)
  Sender: FDA-Public Use
  Company Number: CA-AMGEN-CANSP2011015933

PATIENT
  Age: 61 Year
  Sex: Female
  Weight: 117 kg

DRUGS (16)
  1. NORTRIPTYLINE [Concomitant]
  2. MORPHINE [Concomitant]
  3. AMITRIPTYLINE [Concomitant]
  4. LYRICA [Concomitant]
  5. ADVAIR DISKUS 100/50 [Concomitant]
  6. ZOPICLONE [Concomitant]
  7. LOSEC                              /00661201/ [Concomitant]
  8. CELEBREX [Concomitant]
     Dosage: UNK UNK, BID
  9. SPIRIVA [Concomitant]
  10. AVAPRO [Concomitant]
     Dosage: UNK UNK, QD
  11. TYLENOL WITH CODEIN #4 [Concomitant]
  12. EFFEXOR [Concomitant]
  13. ENBREL [Suspect]
     Indication: RHEUMATOID ARTHRITIS
     Dosage: 50 MG, QWK
     Route: 058
     Dates: start: 20080618, end: 20101223
  14. METHOTREXATE [Concomitant]
  15. ELTROXIN [Concomitant]
  16. VENTOLIN [Concomitant]

REACTIONS (9)
  - LUNG INFECTION [None]
  - BRONCHOPULMONARY ASPERGILLOSIS ALLERGIC [None]
  - PNEUMONIA [None]
  - BRONCHITIS [None]
  - GASTROENTERITIS VIRAL [None]
  - ADRENAL ADENOMA [None]
  - CHRONIC OBSTRUCTIVE PULMONARY DISEASE [None]
  - ANAEMIA [None]
  - WEIGHT INCREASED [None]
